FAERS Safety Report 8413436-9 (Version None)
Quarter: 2012Q2

REPORT INFORMATION
  Report Type: 
  Country: None (occurrence: None)
  Receive Date: 20120605
  Receipt Date: 20120526
  Transmission Date: 20120825
  Serious: Yes (Hospitalization, Other)
  Sender: FDA-Public Use
  Company Number: US-JNJFOC-20120520384

PATIENT
  Sex: Female
  Weight: 39.9 kg

DRUGS (15)
  1. PROBIOTIC [Concomitant]
     Dosage: VIA PEG TUBE
     Route: 050
  2. OMEPRAZOLE [Concomitant]
     Dosage: VIA PEG TUBE
     Route: 050
  3. PREZISTA [Suspect]
     Indication: HIV INFECTION
     Route: 048
  4. DAPSONE [Concomitant]
     Indication: SKIN DISORDER
     Dosage: VIA PEG TUBE
     Route: 050
  5. UNKNOWN MEDICATION [Concomitant]
     Dosage: PEG TUBE
     Route: 050
  6. UNSPECIFIED CREAMS NOS [Concomitant]
     Route: 061
  7. BENZTROPINE MESYLATE [Concomitant]
     Dosage: PEG TUBE
     Route: 050
  8. FLUCONAZOLE [Concomitant]
     Indication: FUNGAL INFECTION
     Dosage: VIA PEG TUBE
     Route: 050
  9. KEPPRA [Concomitant]
     Dosage: VIA PEG TUBE
     Route: 050
  10. INSULIN [Concomitant]
     Indication: DIABETES MELLITUS
     Route: 065
  11. RITONAVIR [Concomitant]
     Dosage: VIA PEG TUBE
     Route: 048
  12. AMITRIPTYLINE HCL [Concomitant]
     Dosage: PEG TUBE
     Route: 050
  13. BENZTROPINE MESYLATE [Concomitant]
     Dosage: PEG TUBE IN THE EVENING
     Route: 050
  14. LORAZEPAM [Concomitant]
     Dosage: VIA PEG TUBE
     Route: 050
  15. TRUVADA [Concomitant]
     Dosage: 200/300 MG VIA PEG TUBE
     Route: 050

REACTIONS (8)
  - HYPERNATRAEMIA [None]
  - URINE ANALYSIS ABNORMAL [None]
  - ATTENTION DEFICIT/HYPERACTIVITY DISORDER [None]
  - PYREXIA [None]
  - HYPOTHYROIDISM [None]
  - FULL BLOOD COUNT ABNORMAL [None]
  - HIP FRACTURE [None]
  - APHASIA [None]
